FAERS Safety Report 21460833 (Version 2)
Quarter: 2022Q4

REPORT INFORMATION
  Report Type: Report from Study
  Country: US (occurrence: US)
  Receive Date: 20221015
  Receipt Date: 20221115
  Transmission Date: 20230113
  Serious: No
  Sender: FDA-Public Use
  Company Number: US-ABBVIE-4145134

PATIENT
  Sex: Female

DRUGS (1)
  1. IMBRUVICA [Suspect]
     Active Substance: IBRUTINIB
     Indication: Chronic lymphocytic leukaemia
     Route: 048
     Dates: start: 201808

REACTIONS (7)
  - Constipation [Unknown]
  - Lymphocyte count increased [Recovering/Resolving]
  - Gastrointestinal disorder [Unknown]
  - Dermatitis [Unknown]
  - Hepatic steatosis [Recovering/Resolving]
  - Peripheral swelling [Unknown]
  - Joint swelling [Unknown]
